FAERS Safety Report 8549079-6 (Version None)
Quarter: 2012Q3

REPORT INFORMATION
  Report Type: 
  Country: None (occurrence: None)
  Receive Date: 20120730
  Receipt Date: 20120727
  Transmission Date: 20120928
  Serious: No
  Sender: FDA-Public Use
  Company Number: US-PFIZER INC-2012182969

PATIENT
  Sex: Female
  Weight: 51.247 kg

DRUGS (1)
  1. SUTENT [Suspect]
     Indication: GASTROINTESTINAL STROMAL TUMOUR
     Dosage: 50 MG, CYCLIC
     Dates: start: 20120529

REACTIONS (3)
  - COUGH [None]
  - PAIN IN EXTREMITY [None]
  - SKIN FISSURES [None]
